FAERS Safety Report 8080244-0 (Version None)
Quarter: 2012Q1

REPORT INFORMATION
  Report Type: 
  Country: None (occurrence: None)
  Receive Date: 20120130
  Receipt Date: 20120118
  Transmission Date: 20120608
  Serious: Yes (Hospitalization, Other)
  Sender: FDA-Public Use
  Company Number: US-ELI_LILLY_AND_COMPANY-US201111003203

PATIENT
  Sex: Female

DRUGS (19)
  1. FISH OIL [Concomitant]
     Dosage: UNK
  2. CALCIUM [Concomitant]
     Dosage: UNK
  3. LISINOPRIL [Concomitant]
     Dosage: UNK
  4. PRAVASTATIN [Concomitant]
     Dosage: UNK
  5. TRAMADOL HCL [Concomitant]
     Dosage: UNK
  6. POTASSIUM [Concomitant]
     Dosage: UNK
  7. VITAMIN B COMPLEX CAP [Concomitant]
     Dosage: UNK
  8. LANTUS [Concomitant]
     Dosage: UNK
  9. ASPIRIN [Concomitant]
     Dosage: 1 DF, QD
  10. HUMALOG [Suspect]
  11. COREG [Concomitant]
     Dosage: UNK, BID
  12. HUMALOG [Suspect]
     Dosage: UNK, PRN
  13. LASIX [Concomitant]
     Dosage: UNK
  14. MULTI-VITAMINS [Concomitant]
     Dosage: UNK
  15. ASCORBIC ACID [Concomitant]
     Dosage: UNK
  16. HUMALOG [Suspect]
     Indication: DIABETES MELLITUS
     Dosage: UNK, PRN
  17. DIGOXIN [Concomitant]
     Dosage: UNK
  18. PLAVIX [Concomitant]
     Dosage: UNK
  19. PROTONIX [Concomitant]
     Indication: GASTRIC DISORDER
     Dosage: UNK

REACTIONS (12)
  - CHEST DISCOMFORT [None]
  - DRUG DOSE OMISSION [None]
  - ASTHENIA [None]
  - WRONG DRUG ADMINISTERED [None]
  - ADVERSE REACTION [None]
  - BLOOD GLUCOSE INCREASED [None]
  - VISUAL IMPAIRMENT [None]
  - MYOCARDIAL INFARCTION [None]
  - INJECTION SITE PAIN [None]
  - HOSPITALISATION [None]
  - FATIGUE [None]
  - CORONARY ARTERY OCCLUSION [None]
